FAERS Safety Report 9026715 (Version 1)
Quarter: 2013Q1

REPORT INFORMATION
  Report Type: Spontaneous
  Country: GB (occurrence: None)
  Receive Date: 20130107
  Receipt Date: 20130107
  Transmission Date: 20140127
  Serious: Yes (Other)
  Sender: FDA-Public Use
  Company Number: GER/UKI/12/0027245

PATIENT
  Sex: Male

DRUGS (3)
  1. OMEPRAZOLE (OMEPRAZOLE) [Suspect]
     Indication: ABDOMINAL DISTENSION
  2. OMEPRAZOLE (OMEPRAZOLE) [Suspect]
     Indication: ABDOMINAL PAIN UPPER
  3. OMEPRAZOLE (OMEPRAZOLE) [Suspect]

REACTIONS (3)
  - Sleep disorder [None]
  - Dysphagia [None]
  - Abdominal pain upper [None]
